FAERS Safety Report 5318579-4 (Version None)
Quarter: 2007Q2

REPORT INFORMATION
  Report Type: 
  Country: None (occurrence: None)
  Receive Date: 20070508
  Receipt Date: 20070501
  Transmission Date: 20071010
  Serious: Yes (Life-Threatening)
  Sender: FDA-Public Use
  Company Number: US-BRACCO-BDI-009483

PATIENT
  Age: 66 Year
  Sex: Female
  Weight: 80 kg

DRUGS (1)
  1. MULTIHANCE [Suspect]
     Route: 050
     Dates: start: 20070430, end: 20070430

REACTIONS (2)
  - HYPERSENSITIVITY [None]
  - SYNCOPE VASOVAGAL [None]
